FAERS Safety Report 19154767 (Version 1)
Quarter: 2021Q2

REPORT INFORMATION
  Report Type: Report from Study
  Country: CA (occurrence: CA)
  Receive Date: 20210419
  Receipt Date: 20210419
  Transmission Date: 20210717
  Serious: Yes (Other)
  Sender: FDA-Public Use
  Company Number: CA-NALPROPION PHARMACEUTICALS INC.-2021-012623

PATIENT

DRUGS (4)
  1. CONTRAVE [Suspect]
     Active Substance: BUPROPION HYDROCHLORIDE\NALTREXONE HYDROCHLORIDE
     Indication: WEIGHT CONTROL
     Dosage: ONE TABLET IN THE MORNING, 90/8 MG
     Route: 048
     Dates: start: 20210226, end: 20210304
  2. CONTRAVE [Suspect]
     Active Substance: BUPROPION HYDROCHLORIDE\NALTREXONE HYDROCHLORIDE
     Dosage: TWO TABLETS IN THE MORNING, ONE TABLET IN THE EVENING, 90/8 MG
     Route: 048
     Dates: start: 20210312, end: 20210318
  3. CONTRAVE [Suspect]
     Active Substance: BUPROPION HYDROCHLORIDE\NALTREXONE HYDROCHLORIDE
     Dosage: ONE TABLET IN THE MORNING, ONE TABLET IN THE EVENING, 90/8 MG
     Route: 048
     Dates: start: 20210305, end: 20210311
  4. CONTRAVE [Suspect]
     Active Substance: BUPROPION HYDROCHLORIDE\NALTREXONE HYDROCHLORIDE
     Dosage: TWO TABLETS IN THE MORNING, TWO TABLETS IN THE EVENING, 90/8MG
     Route: 048
     Dates: start: 20210319

REACTIONS (10)
  - Hypersomnia [Unknown]
  - Hangover [Unknown]
  - Fatigue [Unknown]
  - Headache [Recovered/Resolved]
  - Middle insomnia [Unknown]
  - Blindness transient [Not Recovered/Not Resolved]
  - Stress [Unknown]
  - Migraine [Recovering/Resolving]
  - Emotional disorder [Unknown]
  - Nausea [Unknown]
